FAERS Safety Report 17002547 (Version 5)
Quarter: 2019Q4

REPORT INFORMATION
  Report Type: Report from Study
  Country: US (occurrence: US)
  Receive Date: 20191107
  Receipt Date: 20191226
  Transmission Date: 20200122
  Serious: Yes (Hospitalization, Other)
  Sender: FDA-Public Use
  Company Number: US-BRISTOL-MYERS SQUIBB COMPANY-BMS-2019-104933

PATIENT
  Age: 75 Year
  Sex: Male
  Weight: 79 kg

DRUGS (11)
  1. ACETAMINOPHEN. [Concomitant]
     Active Substance: ACETAMINOPHEN
     Indication: PRODUCT USED FOR UNKNOWN INDICATION
     Dosage: 650 MILLIGRAM
     Route: 048
     Dates: start: 20191029, end: 20191110
  2. ONDANSETRON [Concomitant]
     Active Substance: ONDANSETRON
     Indication: PRODUCT USED FOR UNKNOWN INDICATION
     Dosage: 4 MILLIGRAM
     Route: 042
     Dates: start: 20191029, end: 20191110
  3. NIVOLUMAB [Suspect]
     Active Substance: NIVOLUMAB
     Indication: ADENOCARCINOMA
     Dosage: 240 MILLIGRAM
     Route: 042
     Dates: start: 20191002, end: 20191016
  4. VITAMIN B12 AMINO [Concomitant]
     Indication: PROPHYLAXIS
     Dosage: 2500 MICROGRAM
     Route: 048
     Dates: start: 20161214
  5. IPILIMUMAB [Suspect]
     Active Substance: IPILIMUMAB
     Indication: ADENOCARCINOMA
     Dosage: 79 MILLIGRAM
     Route: 042
     Dates: start: 20191002, end: 20191002
  6. MULTIVITAMINUM [Concomitant]
     Active Substance: VITAMINS
     Indication: PROPHYLAXIS
     Dosage: 1 DOSAGE FORM
     Route: 048
     Dates: start: 20140405
  7. LIDOCAINE PRILOCAINE BIOGARAN [Concomitant]
     Indication: PROPHYLAXIS
     Dosage: 1 DOSAGE FORM
     Route: 061
     Dates: start: 20160915
  8. POTASSIUM CHLORIDE. [Concomitant]
     Active Substance: POTASSIUM CHLORIDE
     Indication: PROPHYLAXIS
     Dosage: 1 DOSAGE FORM: 10 UNIT NOS
     Route: 048
     Dates: start: 20180502
  9. DOCUSATE SODIUM. [Concomitant]
     Active Substance: DOCUSATE SODIUM
     Indication: PRODUCT USED FOR UNKNOWN INDICATION
     Dosage: 240 MILLIGRAM
     Route: 048
     Dates: start: 20161012
  10. ATENOLOL. [Concomitant]
     Active Substance: ATENOLOL
     Indication: PRODUCT USED FOR UNKNOWN INDICATION
     Dosage: 25 MILLIGRAM
     Route: 048
     Dates: start: 20191018, end: 20191029
  11. CALCIUM + MAGNESIUM [Concomitant]
     Active Substance: CALCIUM\MAGNESIUM
     Indication: PROPHYLAXIS
     Dosage: 1 DOSAGE FORM
     Route: 048
     Dates: start: 20170111

REACTIONS (1)
  - Encephalopathy [Recovered/Resolved]

NARRATIVE: CASE EVENT DATE: 20191029
